FAERS Safety Report 6844588-X (Version None)
Quarter: 2010Q3

REPORT INFORMATION
  Report Type: 
  Country: None (occurrence: None)
  Receive Date: 20100715
  Receipt Date: 20100709
  Transmission Date: 20110219
  Serious: Yes (Other)
  Sender: FDA-Public Use
  Company Number: US-BAYER-200922331NA

PATIENT
  Age: 47 Year
  Sex: Female
  Weight: 49 kg

DRUGS (10)
  1. MAGNEVIST [Suspect]
     Indication: NUCLEAR MAGNETIC RESONANCE IMAGING ABDOMINAL
     Dosage: TOTAL DAILY DOSE: 40 ML
     Route: 042
     Dates: start: 20020920, end: 20020920
  2. MAGNEVIST [Suspect]
     Dosage: TOTAL DAILY DOSE: 40 ML
     Route: 042
     Dates: start: 20060524, end: 20060524
  3. OMNISCAN [Suspect]
     Indication: NUCLEAR MAGNETIC RESONANCE IMAGING ABDOMINAL
     Dates: start: 20060418, end: 20060418
  4. MULTIHANCE [Suspect]
     Indication: ANGIOGRAM
     Dosage: TOTAL DAILY DOSE: 20 ML
     Route: 042
     Dates: start: 20070406, end: 20070406
  5. RENAGEL [Concomitant]
  6. COUMADIN [Concomitant]
  7. PROCRIT [Concomitant]
  8. NEPHROCAPS [Concomitant]
  9. PROTONIX [Concomitant]
  10. SYNTHROID [Concomitant]

REACTIONS (23)
  - ARTHRALGIA [None]
  - ASTHENIA [None]
  - DEFORMITY [None]
  - ERYTHEMA [None]
  - EXFOLIATIVE RASH [None]
  - FIBROSIS [None]
  - GAIT DISTURBANCE [None]
  - GENERAL PHYSICAL HEALTH DETERIORATION [None]
  - JOINT CONTRACTURE [None]
  - JOINT RANGE OF MOTION DECREASED [None]
  - JOINT STIFFNESS [None]
  - LIMB DISCOMFORT [None]
  - MUSCULOSKELETAL DISCOMFORT [None]
  - MUSCULOSKELETAL STIFFNESS [None]
  - NEPHROGENIC SYSTEMIC FIBROSIS [None]
  - OCULAR ICTERUS [None]
  - OEDEMA PERIPHERAL [None]
  - PAIN OF SKIN [None]
  - SKIN HYPERPIGMENTATION [None]
  - SKIN HYPERTROPHY [None]
  - SKIN INDURATION [None]
  - SKIN PLAQUE [None]
  - SKIN TIGHTNESS [None]
